FAERS Safety Report 9081770 (Version 1)
Quarter: 2013Q1

REPORT INFORMATION
  Report Type: Report from Study
  Country: US (occurrence: US)
  Receive Date: 20130131
  Receipt Date: 20130131
  Transmission Date: 20140127
  Serious: Yes (Other)
  Sender: FDA-Public Use
  Company Number: US-JNJFOC-20130111591

PATIENT
  Sex: Female
  Weight: 83.46 kg

DRUGS (14)
  1. REMICADE [Suspect]
     Indication: RHEUMATOID ARTHRITIS
     Route: 042
     Dates: start: 201205
  2. METHOTREXATE [Suspect]
     Indication: RHEUMATOID ARTHRITIS
     Route: 048
     Dates: start: 201201
  3. CYMBALTA [Concomitant]
     Indication: PAIN
     Route: 048
     Dates: start: 2008
  4. CYMBALTA [Concomitant]
     Indication: DEPRESSION
     Route: 048
     Dates: start: 2008
  5. STRATTERA [Concomitant]
     Indication: ATTENTION DEFICIT/HYPERACTIVITY DISORDER
     Route: 048
     Dates: start: 2008
  6. MELOXICAM [Concomitant]
     Indication: ANTIINFLAMMATORY THERAPY
     Route: 048
     Dates: start: 201201
  7. ATENOLOL [Concomitant]
     Indication: ANXIETY
     Route: 048
     Dates: start: 2011
  8. MAGNESIUM CITRATE [Concomitant]
     Indication: MUSCLE SPASMS
     Route: 048
     Dates: start: 201204
  9. VITAMIN D3 [Concomitant]
     Indication: VITAMIN D DEFICIENCY
     Route: 048
     Dates: start: 201106, end: 201206
  10. FOLIC ACID [Concomitant]
     Route: 048
     Dates: start: 201201
  11. VOLTAREN [Concomitant]
     Indication: PAIN
     Route: 065
     Dates: start: 2010
  12. VOLTAREN [Concomitant]
     Indication: INFLAMMATION
     Route: 065
     Dates: start: 2010
  13. UNKNOWN MEDICATION [Concomitant]
     Indication: CHRONIC SINUSITIS
     Route: 045
     Dates: start: 2012
  14. LEVOTHYROXINE [Concomitant]
     Indication: AUTOIMMUNE THYROIDITIS
     Route: 065
     Dates: start: 201202

REACTIONS (4)
  - Herpes zoster [Not Recovered/Not Resolved]
  - Vitamin D deficiency [Recovered/Resolved]
  - Weight increased [Unknown]
  - Nausea [Recovered/Resolved]
